FAERS Safety Report 7729116-9 (Version None)
Quarter: 2011Q3

REPORT INFORMATION
  Report Type: 
  Country: None (occurrence: None)
  Receive Date: 20110906
  Receipt Date: 20110825
  Transmission Date: 20111222
  Serious: Yes (Hospitalization, Other)
  Sender: FDA-Public Use
  Company Number: US-BAYER-201040711NA

PATIENT
  Age: 25 Year
  Sex: Female
  Weight: 131.52 kg

DRUGS (24)
  1. YAZ [Suspect]
     Indication: CONTRACEPTION
  2. BYETTA [Concomitant]
  3. ANTIBIOTICS [Concomitant]
  4. HYDROCODONE [Concomitant]
     Indication: PAIN
     Dosage: UNK
     Dates: start: 20040101
  5. IBUPROFEN [Concomitant]
  6. HUMALOG [Concomitant]
  7. INSULIN [Concomitant]
     Indication: DIABETES MELLITUS
     Dosage: UNK
     Dates: start: 20060101
  8. EPIPEN [Concomitant]
  9. LEVEMIR [Concomitant]
  10. VYTORIN [Concomitant]
  11. YAZ [Suspect]
     Indication: PREMENSTRUAL SYNDROME
  12. CYCLOBENZAPRINE [Concomitant]
  13. ACTOPLUS MET [Concomitant]
  14. NEXIUM [Concomitant]
  15. LISINOPRIL [Concomitant]
     Dosage: UNK
     Dates: start: 20060101
  16. VIRAL VACCINES [Concomitant]
     Dosage: UNK
     Dates: start: 20070425
  17. YAZ [Suspect]
     Indication: ACNE
     Dosage: UNK
     Dates: start: 20080201, end: 20080923
  18. TOPAMAX [Concomitant]
     Indication: MIGRAINE
     Dosage: UNK
     Dates: start: 20070101
  19. LORTAB [Concomitant]
     Indication: BACK INJURY
  20. LORTAB [Concomitant]
     Indication: INTERVERTEBRAL DISC PROTRUSION
  21. FLEXERIL [Concomitant]
  22. SEROQUEL [Concomitant]
     Indication: BIPOLAR DISORDER
  23. VIRAL VACCINES [Concomitant]
     Dosage: UNK
     Dates: start: 20070711
  24. VIRAL VACCINES [Concomitant]
     Dosage: UNK
     Dates: start: 20070925

REACTIONS (4)
  - INJURY [None]
  - GALLBLADDER DISORDER [None]
  - CHOLECYSTITIS CHRONIC [None]
  - CHOLESTEROSIS [None]
